FAERS Safety Report 6524934-7 (Version None)
Quarter: 2010Q1

REPORT INFORMATION
  Report Type: 
  Country: None (occurrence: None)
  Receive Date: 20100104
  Receipt Date: 20091222
  Transmission Date: 20100710
  Serious: Yes (Death, Other)
  Sender: FDA-Public Use
  Company Number: US-PFIZER INC-2009313626

PATIENT
  Sex: Male

DRUGS (2)
  1. LIPITOR [Suspect]
  2. DETROL LA [Suspect]

REACTIONS (1)
  - DEATH [None]
